FAERS Safety Report 8453725-5 (Version None)
Quarter: 2012Q2

REPORT INFORMATION
  Report Type: 
  Country: None (occurrence: None)
  Receive Date: 20120620
  Receipt Date: 20120613
  Transmission Date: 20120825
  Serious: Yes (Hospitalization, Other)
  Sender: FDA-Public Use
  Company Number: TH-ACTELION-A-CH2012-66116

PATIENT
  Age: 30 Year
  Sex: Female

DRUGS (5)
  1. FOLIC ACID [Concomitant]
     Dosage: UNK
     Dates: start: 20111010
  2. ALLOPURINOL [Concomitant]
     Dosage: UNK
     Dates: start: 20111010
  3. TRACLEER [Suspect]
     Indication: PULMONARY ARTERIAL HYPERTENSION
     Dosage: UNK , OD
     Route: 048
     Dates: start: 20111010
  4. LASIX [Concomitant]
     Dosage: UNK
     Dates: start: 20111010
  5. COLCHICINE [Concomitant]
     Dosage: UNK
     Dates: start: 20111010

REACTIONS (2)
  - INTRACRANIAL PRESSURE INCREASED [None]
  - HEADACHE [None]
